FAERS Safety Report 7218923-7 (Version None)
Quarter: 2011Q1

REPORT INFORMATION
  Report Type: 
  Country: None (occurrence: None)
  Receive Date: 20110110
  Receipt Date: 20101130
  Transmission Date: 20110831
  Serious: Yes (Other)
  Sender: FDA-Public Use
  Company Number: ES-RANBAXY-2010RR-40356

PATIENT

DRUGS (3)
  1. OMEPRAZOLE [Suspect]
     Indication: HELICOBACTER INFECTION
     Dosage: 20 MG, BID
  2. CLARITHROMYCIN [Suspect]
     Indication: HELICOBACTER INFECTION
     Dosage: 500 MG, BID
  3. LEVOFLOXACIN [Suspect]
     Indication: HELICOBACTER INFECTION
     Dosage: 500 MG, BID

REACTIONS (1)
  - CANDIDIASIS [None]
